FAERS Safety Report 16960359 (Version 6)
Quarter: 2020Q1

REPORT INFORMATION
  Report Type: Spontaneous
  Country: US (occurrence: US)
  Receive Date: 20191025
  Receipt Date: 20200211
  Transmission Date: 20200409
  Serious: Yes (Hospitalization)
  Sender: FDA-Public Use
  Company Number: US-PFIZER INC-2019462681

PATIENT
  Age: 76 Year
  Sex: Male
  Weight: 61.68 kg

DRUGS (2)
  1. VYNDAQEL [Suspect]
     Active Substance: TAFAMIDIS MEGLUMINE
     Indication: FAMILIAL AMYLOIDOSIS
     Dosage: 80 MG, DAILY
     Route: 048
     Dates: start: 20190904
  2. VYNDAQEL [Suspect]
     Active Substance: TAFAMIDIS MEGLUMINE
     Dosage: 40 MG, 2X/DAY
     Route: 048

REACTIONS (4)
  - Drug ineffective for unapproved indication [Not Recovered/Not Resolved]
  - End stage renal disease [Not Recovered/Not Resolved]
  - Off label use [Not Recovered/Not Resolved]
  - Intentional product misuse [Not Recovered/Not Resolved]

NARRATIVE: CASE EVENT DATE: 20190904
